FAERS Safety Report 4323117-9 (Version None)
Quarter: 2004Q1

REPORT INFORMATION
  Report Type: 
  Country: None (occurrence: None)
  Receive Date: 20040325
  Receipt Date: 20030310
  Transmission Date: 20041129
  Serious: No
  Sender: FDA-Public Use
  Company Number: US-BRISTOL-MYERS SQUIBB COMPANY-12207403

PATIENT
  Sex: Female

DRUGS (3)
  1. TRIAMCINOLONE [Suspect]
     Indication: BODY FAT DISORDER
     Route: 051
     Dates: start: 20030101
  2. KENACORT [Suspect]
     Indication: BODY FAT DISORDER
     Route: 051
     Dates: start: 20030101
  3. LIDOCAINE [Suspect]
     Route: 051
     Dates: start: 20030101

REACTIONS (1)
  - INJECTION SITE DISCOLOURATION [None]
